FAERS Safety Report 10795306 (Version 1)
Quarter: 2015Q1

REPORT INFORMATION
  Report Type: Spontaneous
  Country: US (occurrence: US)
  Receive Date: 20150214
  Receipt Date: 20150214
  Transmission Date: 20150721
  Serious: No
  Sender: FDA-Public Use
  Company Number: US-GLAXOSMITHKLINE-A1060597A

PATIENT

DRUGS (1)
  1. NICODERM CQ [Suspect]
     Active Substance: NICOTINE
     Indication: EX-TOBACCO USER
     Route: 062
     Dates: start: 20140205

REACTIONS (8)
  - Head discomfort [Unknown]
  - Poor quality sleep [Unknown]
  - Pain [Unknown]
  - Headache [Unknown]
  - Abnormal dreams [Unknown]
  - Migraine [Unknown]
  - Pyrexia [Not Recovered/Not Resolved]
  - Pyrexia [Unknown]

NARRATIVE: CASE EVENT DATE: 20140209
